FAERS Safety Report 5472682-7 (Version None)
Quarter: 2007Q3

REPORT INFORMATION
  Report Type: 
  Country: None (occurrence: None)
  Receive Date: 20070926
  Receipt Date: 20070911
  Transmission Date: 20080115
  Serious: Yes (Death)
  Sender: FDA-Public Use
  Company Number: AZAIT200700345

PATIENT
  Age: 61 Year
  Sex: Female
  Weight: 65 kg

DRUGS (4)
  1. VIDAZA [Suspect]
     Indication: MYELODYSPLASTIC SYNDROME
     Dosage: (125 MG, DAILY X DAYS), SUBCUTANEOUS
     Route: 058
     Dates: end: 20070819
  2. VALPROIC ACID [Suspect]
     Indication: MYELODYSPLASTIC SYNDROME
     Dosage: (1200 MG), ORAL
     Route: 048
     Dates: start: 20070615, end: 20070823
  3. EUTIROX (LEVOTHYROXINE) [Concomitant]
  4. VALPRESSION (VALSARTAN) [Concomitant]

REACTIONS (7)
  - BLOOD CULTURE POSITIVE [None]
  - CANDIDIASIS [None]
  - DEPRESSED LEVEL OF CONSCIOUSNESS [None]
  - GENERAL PHYSICAL HEALTH DETERIORATION [None]
  - NEUTROPENIA [None]
  - PNEUMONIA FUNGAL [None]
  - SEPTIC SHOCK [None]
